FAERS Safety Report 21806276 (Version 1)
Quarter: 2023Q1

REPORT INFORMATION
  Report Type: Spontaneous
  Country: RO (occurrence: RO)
  Receive Date: 20230102
  Receipt Date: 20230102
  Transmission Date: 20230418
  Serious: Yes (Life-Threatening, Hospitalization, Other)
  Sender: FDA-Public Use
  Company Number: None

PATIENT
  Age: 69 Year
  Sex: Female

DRUGS (2)
  1. OXALIPLATIN [Suspect]
     Active Substance: OXALIPLATIN
     Indication: Chemotherapy
     Dosage: THE PRESCRIBED DOSE OF OXALIPLATIN 85MG/M2: 110 MG IN 120 MINUTES, IN 500 ML GLUCOSE 5%, IN 2-6 HOUR
     Route: 042
     Dates: start: 20221219, end: 20221219
  2. DEXTROSE [Concomitant]
     Active Substance: DEXTROSE
     Indication: Vehicle solution use
     Dosage: 500 ML GLUCOSE 5%, IN 2-6 HOURS

REACTIONS (6)
  - Anaphylactic reaction [Recovered/Resolved]
  - Defaecation urgency [Recovered/Resolved]
  - General physical health deterioration [Recovered/Resolved]
  - Face oedema [Recovered/Resolved]
  - Erythema [Recovered/Resolved]
  - Dyspnoea [Recovered/Resolved]

NARRATIVE: CASE EVENT DATE: 20221219
